FAERS Safety Report 12852129 (Version 1)
Quarter: 2016Q4

REPORT INFORMATION
  Report Type: Spontaneous
  Country: US (occurrence: US)
  Receive Date: 20161014
  Receipt Date: 20161014
  Transmission Date: 20170207
  Serious: No
  Sender: FDA-Public Use
  Company Number: None

PATIENT
  Age: 48 Year
  Sex: Female
  Weight: 60.75 kg

DRUGS (15)
  1. MULTI VITAMIN [Concomitant]
     Active Substance: VITAMINS
  2. C [Concomitant]
  3. VITAMIN B12 [Suspect]
     Active Substance: CYANOCOBALAMIN
  4. BUPROPION. [Concomitant]
     Active Substance: BUPROPION
  5. CALCIUM CITRATE [Concomitant]
     Active Substance: CALCIUM CITRATE
  6. DIAZEPAM. [Concomitant]
     Active Substance: DIAZEPAM
  7. QVAR [Concomitant]
     Active Substance: BECLOMETHASONE DIPROPIONATE
  8. TRAZODONE [Concomitant]
     Active Substance: TRAZODONE HYDROCHLORIDE
  9. NASONEX [Concomitant]
     Active Substance: MOMETASONE FUROATE
  10. MSM [Concomitant]
     Active Substance: DIMETHYL SULFONE
  11. VITAMIN D [Suspect]
     Active Substance: CHOLECALCIFEROL
  12. SEROQUEL XR [Suspect]
     Active Substance: QUETIAPINE FUMARATE
     Indication: BIPOLAR DISORDER
     Dosage: ?          QUANTITY:1 TABLET(S);?
     Route: 048
     Dates: start: 20060815, end: 20161001
  13. TRI-LO-SPRINTEC [Concomitant]
     Active Substance: ETHINYL ESTRADIOL\NORGESTIMATE
  14. VENTILON HFA [Concomitant]
  15. VITAMIN B COMPLEX [Concomitant]
     Active Substance: CYANOCOBALAMIN\DEXPANTHENOL\NIACINAMIDE\PYRIDOXINE HYDROCHLORIDE\RIBOFLAVIN 5^-PHOSPHATE SODIUM\THIAMINE HYDROCHLORIDE\VITAMIN B COMPLEX

REACTIONS (1)
  - Alopecia [None]

NARRATIVE: CASE EVENT DATE: 20160822
